FAERS Safety Report 8531977-0 (Version None)
Quarter: 2012Q3

REPORT INFORMATION
  Report Type: 
  Country: None (occurrence: None)
  Receive Date: 20120723
  Receipt Date: 20120710
  Transmission Date: 20120928
  Serious: Yes (Congenital Anomaly)
  Sender: FDA-Public Use
  Company Number: DE-FRI-1000037278

PATIENT
  Sex: Male

DRUGS (3)
  1. IBUPROFEN [Concomitant]
     Route: 064
     Dates: start: 20040120, end: 20041016
  2. ESCITALOPRAM [Suspect]
     Route: 064
     Dates: end: 20041016
  3. PAROXETINE HCL [Concomitant]
     Dosage: 20 MG
     Route: 064
     Dates: start: 20040120

REACTIONS (4)
  - FOETAL HEART RATE DECELERATION [None]
  - FOETAL EXPOSURE DURING PREGNANCY [None]
  - CAESAREAN SECTION [None]
  - CONGENITAL CENTRAL NERVOUS SYSTEM ANOMALY [None]
